FAERS Safety Report 15770341 (Version 1)
Quarter: 2018Q4

REPORT INFORMATION
  Report Type: Spontaneous
  Country: US (occurrence: US)
  Receive Date: 20181227
  Receipt Date: 20181227
  Transmission Date: 20190205
  Serious: Yes (Life-Threatening)
  Sender: FDA-Public Use
  Company Number: None

PATIENT
  Age: 18 Year
  Sex: Male
  Weight: 59 kg

DRUGS (4)
  1. DIVALPROEX SODIUM DELAYED RELEASE 500MG 1 TABLET PO BID [Concomitant]
  2. CETIRIZINE 10MG 1 TABLET PO DAILY PRN ALLERGY SYMPTOMS [Concomitant]
  3. LAMOTRIGINE. [Suspect]
     Active Substance: LAMOTRIGINE
     Indication: JUVENILE MYOCLONIC EPILEPSY
     Route: 048
  4. LEVETIRACETAM 500MG 1 TABLET PO BID [Concomitant]

REACTIONS (23)
  - Tachycardia [None]
  - Mucosal excoriation [None]
  - Toxic epidermal necrolysis [None]
  - Febrile neutropenia [None]
  - Leukopenia [None]
  - Vascular device infection [None]
  - White blood cell count decreased [None]
  - Scrotal pain [None]
  - Delirium [None]
  - Macule [None]
  - Blister [None]
  - Urinary tract infection [None]
  - Dysphagia [None]
  - Oral disorder [None]
  - Pyrexia [None]
  - Acinetobacter test positive [None]
  - Staphylococcal infection [None]
  - Depressed mood [None]
  - Penile pain [None]
  - Stevens-Johnson syndrome [None]
  - Pain [None]
  - Penile swelling [None]
  - Lichenoid keratosis [None]

NARRATIVE: CASE EVENT DATE: 20181122
